FAERS Safety Report 26113229 (Version 1)
Quarter: 2025Q4

REPORT INFORMATION
  Report Type: Spontaneous
  Country: CN (occurrence: CN)
  Receive Date: 20251202
  Receipt Date: 20251202
  Transmission Date: 20260117
  Serious: Yes (Hospitalization, Other)
  Sender: NOVO NORDISK
  Company Number: CN-NOVOPROD-1553089

PATIENT
  Sex: Male
  Weight: 53 kg

DRUGS (4)
  1. TRESIBA [Suspect]
     Active Substance: INSULIN DEGLUDEC
     Indication: Type 1 diabetes mellitus
     Dosage: 7 IU, QD
     Route: 058
  2. NOVORAPID [Suspect]
     Active Substance: INSULIN ASPART
     Indication: Type 1 diabetes mellitus
     Dosage: 8 U IN THE MORNING AND EVENING ABOUT 7?8 U IN THE NOON
     Route: 058
     Dates: start: 2015
  3. NOVOLIN N [Suspect]
     Active Substance: INSULIN HUMAN
     Indication: Type 1 diabetes mellitus
     Dosage: 9 IU, QD
  4. INSULIN GLULISINE [Suspect]
     Active Substance: INSULIN GLULISINE
     Indication: Type 1 diabetes mellitus
     Dosage: UNK
     Dates: start: 202509

REACTIONS (7)
  - Brain injury [Unknown]
  - Hypoglycaemic unconsciousness [Unknown]
  - Hypoglycaemia [Recovered/Resolved]
  - Underweight [Unknown]
  - Injection site induration [Not Recovered/Not Resolved]
  - Hyperglycaemia [Unknown]
  - Blood glucose increased [Unknown]

NARRATIVE: CASE EVENT DATE: 20250901
